FAERS Safety Report 9968968 (Version 1)
Quarter: 2014Q1

REPORT INFORMATION
  Report Type: Report from Study
  Country: US (occurrence: US)
  Receive Date: 20140306
  Receipt Date: 20140306
  Transmission Date: 20141002
  Serious: No
  Sender: FDA-Public Use
  Company Number: US-ABBVIE-13P-163-1140006-00

PATIENT
  Age: 43 Year
  Sex: Female

DRUGS (19)
  1. HUMIRA [Suspect]
     Indication: PSORIATIC ARTHROPATHY
     Dates: start: 20130826
  2. OXYCODONE / ACETAMINOPHEN [Concomitant]
     Indication: BACK PAIN
     Dosage: 10/325 MG
  3. OXYCODONE / ACETAMINOPHEN [Concomitant]
     Indication: NEUROPATHY PERIPHERAL
  4. TIZANIDINE HYDROCHLORIDE [Concomitant]
     Indication: PAIN
  5. TIZANIDINE HYDROCHLORIDE [Concomitant]
     Indication: NEUROPATHY PERIPHERAL
  6. LYRICA [Concomitant]
     Indication: PAIN
  7. LYRICA [Concomitant]
     Indication: NEUROPATHY PERIPHERAL
  8. METHOTREXATE [Concomitant]
     Indication: PSORIATIC ARTHROPATHY
     Dosage: 1CC
  9. FOLIC ACID [Concomitant]
     Indication: PRODUCT USED FOR UNKNOWN INDICATION
     Dosage: 1MG DAILY
  10. METOPROLOL [Concomitant]
     Indication: HYPERTENSION
  11. SAVELLA [Concomitant]
     Indication: ANXIETY
  12. SAVELLA [Concomitant]
     Indication: DEPRESSION
  13. TRAZODONE [Concomitant]
     Indication: ANXIETY
     Dosage: 300MG DAILY
  14. TRAZODONE [Concomitant]
     Indication: DEPRESSION
  15. VESICARE [Concomitant]
     Indication: HYPERTONIC BLADDER
     Dosage: 10MG DAILY
  16. ESTRADOL [Concomitant]
     Indication: HOT FLUSH
     Dosage: 0.5MG DAILY
  17. VITAMIN D3 [Concomitant]
     Indication: VITAMIN D DECREASED
     Dosage: 5000 UNITS DAILY
  18. ORLISTAT [Concomitant]
     Indication: GASTROINTESTINAL MOTILITY DISORDER
  19. VITAMIN DGL [Concomitant]
     Indication: GASTROOESOPHAGEAL REFLUX DISEASE

REACTIONS (2)
  - Pruritus generalised [Recovering/Resolving]
  - Injection site pain [Recovering/Resolving]
